FAERS Safety Report 7306666-0 (Version None)
Quarter: 2011Q1

REPORT INFORMATION
  Report Type: 
  Country: None (occurrence: None)
  Receive Date: 20110222
  Receipt Date: 20110214
  Transmission Date: 20110831
  Serious: Yes (Hospitalization)
  Sender: FDA-Public Use
  Company Number: US-GILEAD-2011-0035599

PATIENT
  Age: 39 Year
  Sex: Female

DRUGS (8)
  1. LASIX [Concomitant]
  2. COUMADIN [Concomitant]
  3. TRACLEER [Concomitant]
  4. DIGOXIN [Concomitant]
  5. IMURAN [Concomitant]
  6. VENTAVIS [Concomitant]
  7. LETAIRIS [Suspect]
     Indication: PULMONARY HYPERTENSION
     Route: 048
     Dates: start: 20090923
  8. K-DUR [Concomitant]

REACTIONS (2)
  - ANAEMIA [None]
  - HEPATOMEGALY [None]
